FAERS Safety Report 16814982 (Version 1)
Quarter: 2019Q3

REPORT INFORMATION
  Report Type: Spontaneous
  Country: US (occurrence: US)
  Receive Date: 20190917
  Receipt Date: 20190917
  Transmission Date: 20191005
  Serious: No
  Sender: FDA-Public Use
  Company Number: US-ALLERGAN-1925131US

PATIENT
  Sex: Male
  Weight: 100.23 kg

DRUGS (2)
  1. LINZESS [Suspect]
     Active Substance: LINACLOTIDE
     Indication: CONSTIPATION
     Dosage: 290 ?G, BID
     Route: 048
  2. LINZESS [Suspect]
     Active Substance: LINACLOTIDE
     Dosage: 290 ?G, QD
     Route: 048
     Dates: start: 20190522

REACTIONS (5)
  - Diarrhoea [Unknown]
  - Intentional product misuse [Unknown]
  - Drug ineffective [Unknown]
  - Weight decreased [Unknown]
  - Haematochezia [Unknown]
